FAERS Safety Report 18744936 (Version 1)
Quarter: 2021Q1

REPORT INFORMATION
  Report Type: Spontaneous
  Country: US (occurrence: US)
  Receive Date: 20210115
  Receipt Date: 20210115
  Transmission Date: 20210419
  Serious: Yes (Hospitalization, Other)
  Sender: FDA-Public Use
  Company Number: US-STRIDES ARCOLAB LIMITED-2021SP000680

PATIENT
  Age: 69 Year
  Sex: Male

DRUGS (2)
  1. IBUPROFEN. [Suspect]
     Active Substance: IBUPROFEN
     Dosage: 1200 MILLIGRAM PER DAY,DAILY IBUPROFEN USE (1200?1800MG/D)
     Route: 065
  2. IBUPROFEN. [Suspect]
     Active Substance: IBUPROFEN
     Indication: ARTHRALGIA
     Dosage: 1800 MILLIGRAM PER DAY, DAILY IBUPROFEN USE (1200?1800MG/D)
     Route: 065

REACTIONS (4)
  - Nephropathy toxic [Recovered/Resolved]
  - Glomerulonephritis minimal lesion [Recovered/Resolved]
  - Lymphocytic infiltration [Recovered/Resolved]
  - Tubulointerstitial nephritis [Recovered/Resolved]
